FAERS Safety Report 25996893 (Version 1)
Quarter: 2025Q4

REPORT INFORMATION
  Report Type: Spontaneous
  Country: US (occurrence: None)
  Receive Date: 20251104
  Receipt Date: 20251104
  Transmission Date: 20260117
  Serious: Yes (unspecified)
  Sender: FDA-CTU
  Company Number: None

PATIENT
  Age: 41 Year
  Sex: Female
  Weight: 66.87 kg

DRUGS (1)
  1. FLUPHENAZINE HYDROCHORIDE [Suspect]
     Active Substance: FLUPHENAZINE HYDROCHLORIDE
     Indication: Schizophrenia
     Dosage: FREQUENCY : 3 TIMES A DAY;?
     Route: 048
     Dates: start: 20251027, end: 20251101

REACTIONS (1)
  - Oculogyric crisis [None]

NARRATIVE: CASE EVENT DATE: 20251102
